FAERS Safety Report 25997444 (Version 2)
Quarter: 2025Q4

REPORT INFORMATION
  Report Type: Spontaneous
  Country: EU (occurrence: EU)
  Receive Date: 20251104
  Receipt Date: 20251111
  Transmission Date: 20260117
  Serious: Yes (Other)
  Sender: SANDOZ
  Company Number: None

PATIENT
  Sex: Female

DRUGS (7)
  1. ADALIMUMAB [Suspect]
     Active Substance: ADALIMUMAB
     Indication: Colitis ulcerative
     Dosage: 40 MG, Q2W
     Route: 058
     Dates: start: 2018, end: 2023
  2. ADALIMUMAB [Suspect]
     Active Substance: ADALIMUMAB
     Indication: Psoriasis
  3. CORTICOSTEROID NOS [Concomitant]
     Active Substance: CORTICOSTEROID NOS
     Dosage: UNK
     Route: 042
     Dates: start: 2007
  4. CORTICOSTEROID NOS [Concomitant]
     Active Substance: CORTICOSTEROID NOS
     Indication: Colitis ulcerative
     Dosage: UNK
     Route: 048
  5. Immunoglobulin [Concomitant]
     Indication: Immunodeficiency common variable
     Dosage: UNK
     Route: 042
     Dates: start: 2012
  6. Immunoglobulin [Concomitant]
     Dosage: UNK
     Route: 058
     Dates: start: 2015
  7. METHOTREXATE [Concomitant]
     Active Substance: METHOTREXATE
     Indication: Colitis ulcerative
     Dosage: UNK
     Route: 065
     Dates: start: 2012

REACTIONS (3)
  - Psoriatic arthropathy [Recovering/Resolving]
  - Oesophagitis [Recovering/Resolving]
  - Maternal exposure during pregnancy [Unknown]

NARRATIVE: CASE EVENT DATE: 20220101
